FAERS Safety Report 8759774 (Version 3)
Quarter: 2013Q1

REPORT INFORMATION
  Report Type: Report from Study
  Country: NL (occurrence: NL)
  Receive Date: 20120829
  Receipt Date: 20130218
  Transmission Date: 20140127
  Serious: Yes (Hospitalization, Other)
  Sender: FDA-Public Use
  Company Number: NL-ROCHE-1103489

PATIENT
  Age: 27 Year
  Sex: Female
  Weight: 68 kg

DRUGS (18)
  1. CELECOXIB [Concomitant]
     Route: 048
     Dates: start: 20110825
  2. PARACETAMOL [Concomitant]
     Dosage: AS REQUIRED
     Route: 065
     Dates: start: 201102
  3. MICROGYNON [Concomitant]
     Route: 065
  4. HYDROXYCHLOROQUINE [Concomitant]
     Route: 048
     Dates: start: 20120809
  5. HYDROXYCHLOROQUINE [Concomitant]
     Route: 048
  6. FOLIC ACID [Concomitant]
     Route: 048
  7. TOCILIZUMAB [Suspect]
     Indication: RHEUMATOID ARTHRITIS
     Dosage: DATE OF LAST DOSE PRIOR TO SAE 09/AUG/2012
     Route: 042
     Dates: start: 20111004
  8. TOCILIZUMAB [Suspect]
     Route: 042
     Dates: start: 20120809
  9. TOCILIZUMAB [Suspect]
     Route: 042
     Dates: start: 20120712
  10. TOCILIZUMAB [Suspect]
     Route: 042
     Dates: start: 20120614
  11. TOCILIZUMAB [Suspect]
     Route: 042
     Dates: start: 20120522
  12. PLACEBO [Suspect]
     Indication: RHEUMATOID ARTHRITIS
     Dosage: LAST DOSE PRIOR TO SAE 13/AUG/2012
     Route: 048
     Dates: start: 20111006, end: 20111104
  13. PLACEBO [Suspect]
     Route: 048
     Dates: start: 20111104, end: 20111201
  14. PLACEBO [Suspect]
     Route: 048
     Dates: start: 20111201, end: 20111230
  15. PLACEBO [Suspect]
     Route: 048
     Dates: start: 20111230, end: 20120222
  16. PLACEBO [Suspect]
     Route: 048
     Dates: start: 20120301, end: 20120419
  17. PLACEBO [Suspect]
     Route: 048
     Dates: start: 20120420, end: 20120522
  18. PLACEBO [Suspect]
     Route: 048
     Dates: start: 20120522, end: 20120820

REACTIONS (1)
  - Tonsillitis [Recovered/Resolved]
